FAERS Safety Report 24210149 (Version 4)
Quarter: 2024Q4

REPORT INFORMATION
  Report Type: Spontaneous
  Country: US (occurrence: US)
  Receive Date: 20240814
  Receipt Date: 20241119
  Transmission Date: 20250115
  Serious: Yes (Hospitalization)
  Sender: CATALYST PHARMA
  Company Number: US-CATALYST PHARMACEUTICALS-US-CATA-24-00858

PATIENT
  Age: 13 Year
  Sex: Male
  Weight: 64.989 kg

DRUGS (4)
  1. AGAMREE [Suspect]
     Active Substance: VAMOROLONE
     Indication: Duchenne muscular dystrophy
     Dosage: 7.5 ML ONCE DAILY
     Route: 048
     Dates: start: 20240625
  2. FLINTSTONES OMEGA 3 DHA [Concomitant]
     Indication: Hypovitaminosis
     Dosage: 1 GUMMY DAILY
     Route: 065
  3. FLINTSTONES OMEGA 3 DHA [Concomitant]
     Dosage: 3 DHA GUMMIES DAILY
     Route: 065
  4. ENALAPRIL [Concomitant]
     Active Substance: ENALAPRIL
     Indication: Cardiac disorder
     Dosage: ONE TABLET DAILY
     Route: 065

REACTIONS (2)
  - Spinal fusion surgery [Recovered/Resolved]
  - Product dose omission issue [Unknown]

NARRATIVE: CASE EVENT DATE: 20240805
